FAERS Safety Report 4554435-7 (Version None)
Quarter: 2005Q1

REPORT INFORMATION
  Report Type: 
  Country: None (occurrence: None)
  Receive Date: 20050118
  Receipt Date: 20050106
  Transmission Date: 20050727
  Serious: Yes (Hospitalization)
  Sender: FDA-Public Use
  Company Number: FRWYE318406JAN05

PATIENT
  Age: 35 Year
  Sex: Male

DRUGS (1)
  1. ENBREL [Suspect]
     Indication: ANKYLOSING SPONDYLITIS
     Dosage: UNKNOWN
     Route: 058
     Dates: start: 20040515, end: 20040915

REACTIONS (4)
  - BLOOD BRAIN BARRIER DEFECT [None]
  - BRAIN NEOPLASM [None]
  - HEADACHE [None]
  - MALAISE [None]
